FAERS Safety Report 8100108-3 (Version None)
Quarter: 2012Q1

REPORT INFORMATION
  Report Type: 
  Country: None (occurrence: None)
  Receive Date: 20120129
  Receipt Date: 20111129
  Transmission Date: 20120608
  Serious: No
  Sender: FDA-Public Use
  Company Number: US-ABBOTT-11P-163-0878967-00

PATIENT
  Age: 48 Year
  Sex: Male

DRUGS (4)
  1. BENICAR [Concomitant]
     Indication: BLOOD PRESSURE
     Route: 048
     Dates: start: 20060101
  2. HUMIRA [Suspect]
     Indication: PSORIASIS
     Dates: start: 20080101
  3. VOLTAREN [Concomitant]
     Indication: PAIN
  4. DEPO-TESTOSTERONE [Concomitant]
     Indication: BLOOD TESTOSTERONE DECREASED
     Route: 061
     Dates: start: 20070101

REACTIONS (2)
  - INJECTION SITE CELLULITIS [None]
  - INJECTION SITE PAIN [None]
